FAERS Safety Report 15426064 (Version 2)
Quarter: 2018Q4

REPORT INFORMATION
  Report Type: Spontaneous
  Country: GB (occurrence: GB)
  Receive Date: 20180925
  Receipt Date: 20181112
  Transmission Date: 20190204
  Serious: Yes (Other)
  Sender: FDA-Public Use
  Company Number: GB-PFIZER INC-2018379966

PATIENT
  Age: 60 Year
  Sex: Female

DRUGS (7)
  1. COLCHICINE. [Suspect]
     Active Substance: COLCHICINE
     Dosage: 1 MG, 1X/DAY (1 MG, ONCE DAILY (QD))
  2. ALLOPURINOL. [Suspect]
     Active Substance: ALLOPURINOL
     Dosage: 300 MG, 1X/DAY (300 MG, ONCE DAILY (QD))
  3. METFORMIN [Suspect]
     Active Substance: METFORMIN HYDROCHLORIDE
     Dosage: 1500 MG, 1X/DAY (1500 MG, ONCE DAILY (QD))
  4. VALSARTAN. [Suspect]
     Active Substance: VALSARTAN
     Dosage: 120 MG, 1X/DAY (120 MG, ONCE DAILY (QD))
  5. MIRTAZAPINE. [Suspect]
     Active Substance: MIRTAZAPINE
     Indication: DEPRESSION
     Dosage: UNK (FOR TEN YEARS)
  6. DOXAZOSIN MESILATE [Suspect]
     Active Substance: DOXAZOSIN MESYLATE
     Dosage: 4 MG, 1X/DAY (4 MG, ONCE DAILY (QD))
  7. CETIRIZINE [Suspect]
     Active Substance: CETIRIZINE HYDROCHLORIDE
     Dosage: 10 MG, 1X/DAY (10 MG, ONCE DAILY (QD))

REACTIONS (1)
  - Pancreatitis acute [Unknown]
